FAERS Safety Report 4888329-4 (Version None)
Quarter: 2006Q1

REPORT INFORMATION
  Report Type: 
  Country: None (occurrence: None)
  Receive Date: 20060123
  Receipt Date: 20060109
  Transmission Date: 20060701
  Serious: Yes (Death, Congenital Anomaly)
  Sender: FDA-Public Use
  Company Number: FR-GLAXOSMITHKLINE-B0406979A

PATIENT
  Sex: Female

DRUGS (5)
  1. NIMBEX [Suspect]
     Indication: GENERAL ANAESTHESIA
     Dates: start: 20040801, end: 20040801
  2. TOPALGIC ( FRANCE ) [Suspect]
     Dates: start: 20040801, end: 20040801
  3. THIOPENTAL SODIUM [Suspect]
     Dates: start: 20040801, end: 20040801
  4. SUFENTA [Suspect]
     Indication: GENERAL ANAESTHESIA
     Dates: start: 20040801, end: 20040801
  5. PERFALGAN [Suspect]
     Dates: start: 20040801, end: 20040801

REACTIONS (11)
  - COARCTATION OF THE AORTA [None]
  - DRUG EXPOSURE DURING PREGNANCY [None]
  - DUODENAL ATRESIA [None]
  - ECTOPIC KIDNEY [None]
  - HEART DISEASE CONGENITAL [None]
  - LIMB REDUCTION DEFECT [None]
  - MULTIPLE CONGENITAL ABNORMALITIES [None]
  - OESOPHAGEAL ATRESIA [None]
  - SPINE MALFORMATION [None]
  - TRACHEO-OESOPHAGEAL FISTULA [None]
  - VATER SYNDROME [None]
